FAERS Safety Report 18300938 (Version 13)
Quarter: 2021Q2

REPORT INFORMATION
  Report Type: Report from Study
  Country: US (occurrence: US)
  Receive Date: 20200923
  Receipt Date: 20210408
  Transmission Date: 20210717
  Serious: Yes (Hospitalization)
  Sender: FDA-Public Use
  Company Number: US-EISAI MEDICAL RESEARCH-EC-2020-080870

PATIENT
  Age: 74 Year
  Sex: Male
  Weight: 90.6 kg

DRUGS (15)
  1. PEMBROLIZUMAB. [Suspect]
     Active Substance: PEMBROLIZUMAB
     Route: 041
     Dates: start: 20201007
  2. MK?1308 [Suspect]
     Active Substance: QUAVONLIMAB
     Route: 041
     Dates: start: 20201007
  3. ASCORBIC ACID. [Concomitant]
     Active Substance: ASCORBIC ACID
     Dates: start: 200001
  4. SYSTANE GEL [Concomitant]
     Dates: start: 20200427
  5. BIOTENE NOS [Concomitant]
     Active Substance: CETYLPYRIDINIUM CHLORIDE OR SODIUM FLUORIDE OR SODIUM MONOFLUOROPHOSPHATE OR GLUCOSE OXIDASE\LACTOFERRIN\LACTOPEROXIDASE BOVINE\LYSOZYME
     Dates: start: 20200819
  6. AZITHROMYCIN ANHYDROUS. [Concomitant]
     Active Substance: AZITHROMYCIN ANHYDROUS
     Dates: start: 20200916, end: 20200916
  7. PEMBROLIZUMAB. [Suspect]
     Active Substance: PEMBROLIZUMAB
     Route: 041
     Dates: start: 20200826, end: 20200826
  8. CEFTRIAXONE. [Concomitant]
     Active Substance: CEFTRIAXONE
     Dates: start: 20200916, end: 20200916
  9. MK?1308 [Suspect]
     Active Substance: QUAVONLIMAB
     Route: 041
     Dates: start: 20200826, end: 20200826
  10. REFRESH CELLUVISC [Concomitant]
     Active Substance: CARBOXYMETHYLCELLULOSE SODIUM
     Dates: start: 20200427
  11. MK?1308 [Suspect]
     Active Substance: QUAVONLIMAB
     Indication: MALIGNANT MELANOMA
     Route: 041
     Dates: start: 20200715, end: 20200715
  12. ALUMINUM HYDROXIDE, DIPHENHYDRAMINE, LIDOCAINE, MAGNESIUM, SIMETHICONE [Concomitant]
     Dates: start: 20200819
  13. LENVATINIB [Suspect]
     Active Substance: LENVATINIB
     Indication: MALIGNANT MELANOMA
     Route: 048
     Dates: start: 20200715, end: 20200915
  14. PEMBROLIZUMAB. [Suspect]
     Active Substance: PEMBROLIZUMAB
     Indication: MALIGNANT MELANOMA
     Route: 041
     Dates: start: 20200715, end: 20200715
  15. TYLENOL [Concomitant]
     Active Substance: ACETAMINOPHEN
     Dates: start: 200001

REACTIONS (1)
  - Embolism [Not Recovered/Not Resolved]

NARRATIVE: CASE EVENT DATE: 20200916
